FAERS Safety Report 8511014-4 (Version None)
Quarter: 2012Q3

REPORT INFORMATION
  Report Type: 
  Country: None (occurrence: None)
  Receive Date: 20120716
  Receipt Date: 20120706
  Transmission Date: 20120928
  Serious: Yes (Hospitalization)
  Sender: FDA-Public Use
  Company Number: CA-JNJFOC-20120703298

PATIENT
  Sex: Male
  Weight: 80.9 kg

DRUGS (3)
  1. AZATHIOPRINE [Concomitant]
     Route: 065
  2. REMICADE [Suspect]
     Indication: CROHN'S DISEASE
     Route: 042
     Dates: start: 20080625
  3. PANTOPRAZOLE SODIUM [Concomitant]
     Route: 065

REACTIONS (1)
  - ENTEROSTOMY CLOSURE [None]
